FAERS Safety Report 7909061-6 (Version None)
Quarter: 2011Q4

REPORT INFORMATION
  Report Type: 
  Country: None (occurrence: None)
  Receive Date: 20111111
  Receipt Date: 20111108
  Transmission Date: 20120403
  Serious: Yes (Death)
  Sender: FDA-Public Use
  Company Number: AU-B.I. PHARMACEUTICALS,INC./RIDGEFIELD-2011-AU-02098AU

PATIENT
  Sex: Female

DRUGS (5)
  1. LASIX [Concomitant]
  2. LIPITOR [Concomitant]
  3. METOPROLOL TARTRATE [Concomitant]
  4. DIGOXIN [Concomitant]
  5. PRADAXA [Suspect]
     Indication: ATRIAL FIBRILLATION
     Dates: start: 20110803, end: 20111023

REACTIONS (1)
  - DEATH [None]
